FAERS Safety Report 5572255-1 (Version None)
Quarter: 2007Q4

REPORT INFORMATION
  Report Type: 
  Country: None (occurrence: None)
  Receive Date: 20071221
  Receipt Date: 20071211
  Transmission Date: 20080405
  Serious: Yes (Other)
  Sender: FDA-Public Use
  Company Number: US-PFIZER INC-2007105420

PATIENT
  Sex: Female
  Weight: 59 kg

DRUGS (3)
  1. CHANTIX [Suspect]
     Indication: SMOKING CESSATION THERAPY
     Dates: start: 20070901, end: 20071201
  2. WARFARIN SODIUM [Concomitant]
  3. NORVASC [Concomitant]

REACTIONS (3)
  - ANGER [None]
  - HOMICIDAL IDEATION [None]
  - PERSONALITY CHANGE [None]
